FAERS Safety Report 6508165-2 (Version None)
Quarter: 2009Q4

REPORT INFORMATION
  Report Type: 
  Country: None (occurrence: None)
  Receive Date: 20091221
  Receipt Date: 20081215
  Transmission Date: 20100525
  Serious: No
  Sender: FDA-Public Use
  Company Number: US-ASTRAZENECA-2008UW28066

PATIENT
  Age: 74 Year
  Sex: Male

DRUGS (5)
  1. CRESTOR [Suspect]
     Route: 048
     Dates: end: 20081201
  2. ASPIRIN [Concomitant]
  3. AVODART [Concomitant]
  4. LOTREL [Concomitant]
     Dosage: 5/10
  5. VITAMIN B-12 [Concomitant]

REACTIONS (3)
  - BLOOD CREATINE PHOSPHOKINASE INCREASED [None]
  - HEPATIC ENZYME INCREASED [None]
  - MALAISE [None]
